FAERS Safety Report 9843577 (Version 1)
Quarter: 2013Q4

REPORT INFORMATION
  Report Type: Spontaneous
  Country: US (occurrence: None)
  Receive Date: 20131219
  Receipt Date: 20131219
  Transmission Date: 20140711
  Serious: Yes (Death)
  Sender: FDA-Public Use
  Company Number: 163-20785-13032298

PATIENT
  Age: 54 Year
  Sex: Male

DRUGS (10)
  1. THALOMID (THALIDOMIDE) (CAPSULES) [Suspect]
     Indication: PLASMA CELL MYELOMA
     Route: 048
     Dates: start: 20110119
  2. AMBIEN (ZOLPIDEM TARTRATE) (TABLETS) [Concomitant]
  3. DURAGESIC (FENTANYL) (POULTICE OR PATCH) [Concomitant]
  4. LACTULOSE (LACTULOSE) (SOLUTION) [Concomitant]
  5. LEVEMIR (INSULIN DETEMIR) (INJECTION) [Concomitant]
  6. LORAZEPAM (LORAZEPAM) (TABLETS) [Concomitant]
  7. METHIMAZOLE (THIAMAZOLE) (TABLETS) [Concomitant]
  8. MORPHINE SULFATE (MORPHINE SULFATE) (TABLETS) [Concomitant]
  9. PROPRANOLOL HCL (PROPRANOLOL HYDROCHLORIDE) (TABLETS) [Concomitant]
  10. ZOFRAN (ONDANSETRON HYDROCHLORIDE) (TABLETS) [Concomitant]

REACTIONS (1)
  - Plasma cell myeloma [None]
